FAERS Safety Report 20608199 (Version 1)
Quarter: 2022Q1

REPORT INFORMATION
  Report Type: Spontaneous
  Country: BR (occurrence: BR)
  Receive Date: 20220317
  Receipt Date: 20220317
  Transmission Date: 20220424
  Serious: Yes (Hospitalization)
  Sender: FDA-Public Use
  Company Number: BR-ABBOTT-2022A-1346561

PATIENT
  Sex: Male
  Weight: 27 kg

DRUGS (1)
  1. DEPAKOTE [Suspect]
     Active Substance: DIVALPROEX SODIUM
     Indication: Cerebral palsy
     Dosage: 1 CAPSULE IN THE MORNING, 2 AT NIGHT. STARTED 8 YEARS AGO. ADMINISTERED VIA ENTERAL PROBE
     Route: 048

REACTIONS (6)
  - Spinal operation [Unknown]
  - Product preparation issue [Unknown]
  - Product use issue [Unknown]
  - Wrong technique in product usage process [Unknown]
  - Product use in unapproved indication [Unknown]
  - Product use issue [Unknown]

NARRATIVE: CASE EVENT DATE: 20220101
